FAERS Safety Report 4888509-8 (Version None)
Quarter: 2005Q4

REPORT INFORMATION
  Report Type: 
  Country: None (occurrence: None)
  Receive Date: 20051207
  Receipt Date: 20050420
  Transmission Date: 20060501
  Serious: Yes (Hospitalization, Other)
  Sender: FDA-Public Use
  Company Number: 2005047871

PATIENT
  Age: 42 Year
  Sex: Male
  Weight: 81.6475 kg

DRUGS (5)
  1. VIAGRA [Suspect]
     Indication: ILL-DEFINED DISORDER
     Dosage: 100 MG  (100 MG)
     Dates: start: 20050317, end: 20050317
  2. PAPAVERINE HYDROCHLORIDE (PAPAVERINE HYDROCHLORIDE) [Suspect]
     Indication: ILL-DEFINED DISORDER
  3. ALPROSTADIL [Suspect]
     Indication: ILL-DEFINED DISORDER
  4. METHAMPHETAMINE HCL [Concomitant]
  5. UNSPCIFIED DRUG [Suspect]
     Indication: ILL-DEFINED DISORDER

REACTIONS (3)
  - INTENTIONAL DRUG MISUSE [None]
  - MENTAL DISORDER [None]
  - PRIAPISM [None]
